FAERS Safety Report 7736316-0 (Version None)
Quarter: 2011Q3

REPORT INFORMATION
  Report Type: 
  Country: None (occurrence: None)
  Receive Date: 20110817
  Receipt Date: 20100622
  Transmission Date: 20111222
  Serious: Yes (Hospitalization)
  Sender: FDA-Public Use
  Company Number: 20097431

PATIENT
  Sex: Male

DRUGS (1)
  1. LIORESAL [Suspect]
     Indication: MUSCLE SPASTICITY
     Dosage: MCG, DAILY, INTRATHECAL
     Route: 037

REACTIONS (11)
  - PRURITUS [None]
  - LETHARGY [None]
  - MUSCLE SPASTICITY [None]
  - PRURITUS GENERALISED [None]
  - THERAPY CESSATION [None]
  - DRUG INEFFECTIVE [None]
  - PARAESTHESIA [None]
  - HYPERHIDROSIS [None]
  - INSOMNIA [None]
  - UNDERDOSE [None]
  - HYPERTONIA [None]
